FAERS Safety Report 19692882 (Version 2)
Quarter: 2021Q3

REPORT INFORMATION
  Report Type: Report from Study
  Country: EG (occurrence: EG)
  Receive Date: 20210813
  Receipt Date: 20210821
  Transmission Date: 20211014
  Serious: Yes (Other)
  Sender: FDA-Public Use
  Company Number: NVSC2021EG179085

PATIENT
  Age: 33 Year
  Sex: Female

DRUGS (2)
  1. GILENYA [Suspect]
     Active Substance: FINGOLIMOD HYDROCHLORIDE
     Indication: MULTIPLE SCLEROSIS
     Dosage: 0.5 MG, QD
     Route: 048
     Dates: start: 2018
  2. CORTISONE [Concomitant]
     Active Substance: CORTISONE
     Dosage: UNK (DURING ATTACKS)
     Route: 065

REACTIONS (11)
  - Liver function test abnormal [Recovered/Resolved]
  - Fatigue [Not Recovered/Not Resolved]
  - Lethargy [Not Recovered/Not Resolved]
  - Movement disorder [Recovered/Resolved]
  - Anaemia [Unknown]
  - Vision blurred [Recovered/Resolved]
  - Visual impairment [Recovered/Resolved]
  - White blood cell count increased [Unknown]
  - Neuropathy peripheral [Not Recovered/Not Resolved]
  - Multiple sclerosis [Recovering/Resolving]
  - Diplopia [Recovered/Resolved]

NARRATIVE: CASE EVENT DATE: 202008
